FAERS Safety Report 15798863 (Version 1)
Quarter: 2019Q1

REPORT INFORMATION
  Report Type: Report from Study
  Country: CA (occurrence: CA)
  Receive Date: 20190108
  Receipt Date: 20190108
  Transmission Date: 20190417
  Serious: Yes (Other)
  Sender: FDA-Public Use
  Company Number: CA-INCYTE CORPORATION-2017IN001278

PATIENT

DRUGS (6)
  1. JAKAVI [Suspect]
     Active Substance: RUXOLITINIB
     Indication: MYELOFIBROSIS
     Dosage: 20 MG, BID
     Route: 048
     Dates: start: 20161207
  2. BABY ASPIRIN [Concomitant]
     Active Substance: ASPIRIN
     Indication: PRODUCT USED FOR UNKNOWN INDICATION
     Dosage: UNK
     Route: 065
  3. JAKAVI [Suspect]
     Active Substance: RUXOLITINIB
     Dosage: 25 MG, BID
     Route: 048
  4. HYDROXYUREA. [Concomitant]
     Active Substance: HYDROXYUREA
     Indication: PRODUCT USED FOR UNKNOWN INDICATION
     Dosage: 500 MG, QW5
     Route: 065
  5. HYDROXYUREA. [Concomitant]
     Active Substance: HYDROXYUREA
     Dosage: 500 MG, QW3
     Route: 065
  6. HYDREA [Concomitant]
     Active Substance: HYDROXYUREA
     Indication: PRODUCT USED FOR UNKNOWN INDICATION
     Dosage: 500 MG, QD (FIVE DAYS A WEEK)
     Route: 065

REACTIONS (15)
  - Red blood cell count decreased [Recovering/Resolving]
  - Splenomegaly [Not Recovered/Not Resolved]
  - Swelling [Unknown]
  - Leukaemia [Unknown]
  - Pyrexia [Recovering/Resolving]
  - Hepatomegaly [Not Recovered/Not Resolved]
  - Platelet count increased [Recovered/Resolved]
  - Infection [Unknown]
  - Nasopharyngitis [Unknown]
  - Malaise [Unknown]
  - Drug ineffective [Unknown]
  - White blood cell count decreased [Unknown]
  - White blood cell count increased [Unknown]
  - Myelofibrosis [Unknown]
  - Night sweats [Recovering/Resolving]

NARRATIVE: CASE EVENT DATE: 201710
